FAERS Safety Report 10144241 (Version 1)
Quarter: 2014Q2

REPORT INFORMATION
  Report Type: Spontaneous
  Country: US (occurrence: US)
  Receive Date: 20140430
  Receipt Date: 20140430
  Transmission Date: 20141212
  Serious: Yes (Other)
  Sender: FDA-Public Use
  Company Number: US-BAXTER-2014BAX021193

PATIENT
  Age: 74 Year
  Sex: Female
  Weight: 90 kg

DRUGS (1)
  1. GAMMAGARD LIQUID [Suspect]
     Indication: IMMUNODEFICIENCY
     Route: 042
     Dates: start: 201211

REACTIONS (1)
  - Urinary tract infection [Recovered/Resolved]
